FAERS Safety Report 21480979 (Version 1)
Quarter: 2022Q4

REPORT INFORMATION
  Report Type: Spontaneous
  Country: PL (occurrence: PL)
  Receive Date: 20221019
  Receipt Date: 20221019
  Transmission Date: 20230113
  Serious: Yes (Other)
  Sender: FDA-Public Use
  Company Number: PL-BoehringerIngelheim-2022-BI-196862

PATIENT
  Age: 67 Year
  Sex: Male

DRUGS (13)
  1. JARDIANCE [Suspect]
     Active Substance: EMPAGLIFLOZIN
     Indication: Product used for unknown indication
  2. METFORMIN HYDROCHLORIDE [Concomitant]
     Active Substance: METFORMIN HYDROCHLORIDE
     Indication: Product used for unknown indication
  3. METFORMIN HYDROCHLORIDE [Concomitant]
     Active Substance: METFORMIN HYDROCHLORIDE
  4. INSULIN HUMAN [Concomitant]
     Active Substance: INSULIN HUMAN
     Indication: Product used for unknown indication
     Dosage: AT 10 P.M.; DRUG WITHDRAWN 3 MONTH AFTER THE STROKE; DIETETIC EDUCATION
  5. ACARD [Concomitant]
     Indication: Product used for unknown indication
     Dosage: FOR ONE MONTH WITH COMBINATION WITH PLAVIX; NEXT WITH COMBINATION WITH XARELTO 2X2,5 MG
  6. ACARD [Concomitant]
  7. PLAVIX [Concomitant]
     Active Substance: CLOPIDOGREL BISULFATE
     Indication: Product used for unknown indication
     Dosage: FOR ONE MONTH IN COMBINATION WITH ACARD
  8. XARELTO [Concomitant]
     Active Substance: RIVAROXABAN
     Indication: Product used for unknown indication
     Dosage: IN COMBINATION WITH ACARD 1X/DAY
  9. RAMIPRIL [Concomitant]
     Active Substance: RAMIPRIL
     Indication: Product used for unknown indication
  10. ROSUTROX [Concomitant]
     Indication: Product used for unknown indication
  11. ROSUTROX [Concomitant]
  12. TRULICITY [Concomitant]
     Active Substance: DULAGLUTIDE
     Indication: Product used for unknown indication
  13. Trifas [Concomitant]
     Indication: Product used for unknown indication

REACTIONS (5)
  - Aortic thrombosis [Unknown]
  - Blood glucose abnormal [Unknown]
  - Arteriosclerosis [Unknown]
  - Electrocardiogram Q wave abnormal [Unknown]
  - Arteriovenous fistula [Unknown]
